FAERS Safety Report 14554729 (Version 2)
Quarter: 2018Q1

REPORT INFORMATION
  Report Type: Spontaneous
  Country: US (occurrence: US)
  Receive Date: 20180220
  Receipt Date: 20180309
  Transmission Date: 20180509
  Serious: No
  Sender: FDA-Public Use
  Company Number: US-BEH-2018088123

PATIENT
  Age: 4 Year
  Sex: Female
  Weight: 14.33 kg

DRUGS (15)
  1. HIZENTRA [Suspect]
     Active Substance: HUMAN IMMUNOGLOBULIN G
     Dosage: UNK
     Route: 058
  2. SULFATRIM [Concomitant]
     Active Substance: SULFAMETHOXAZOLE\TRIMETHOPRIM
  3. FLONASE [Concomitant]
     Active Substance: FLUTICASONE PROPIONATE
  4. CHILDRENS ALLERGY NOS [Concomitant]
     Active Substance: FEXOFENADINE HYDROCHLORIDE OR LORATADINE
     Route: 065
  5. EPINEPHRINE. [Concomitant]
     Active Substance: EPINEPHRINE
  6. IBUPROFEN. [Concomitant]
     Active Substance: IBUPROFEN
  7. DIPHENHYDRAMINE. [Concomitant]
     Active Substance: DIPHENHYDRAMINE
  8. KEPPRA [Concomitant]
     Active Substance: LEVETIRACETAM
  9. ALBUTEROL                          /00139501/ [Concomitant]
     Active Substance: ALBUTEROL
  10. CULTURELLE [Concomitant]
     Active Substance: LACTOBACILLUS RHAMNOSUS
  11. SINGULAIR [Concomitant]
     Active Substance: MONTELUKAST SODIUM
  12. POLY-VI-SOL                        /00200301/ [Concomitant]
  13. PEPCID                             /00305201/ [Concomitant]
     Active Substance: ALUMINUM HYDROXIDE\MAGNESIUM CARBONATE
  14. HIZENTRA [Suspect]
     Active Substance: HUMAN IMMUNOGLOBULIN G
     Indication: HYPOGAMMAGLOBULINAEMIA
     Dosage: 3 G, QOW
     Route: 058
     Dates: start: 20160628
  15. ACETAMINOPHEN. [Concomitant]
     Active Substance: ACETAMINOPHEN

REACTIONS (1)
  - Injection site mass [Unknown]

NARRATIVE: CASE EVENT DATE: 20180201
